FAERS Safety Report 26203870 (Version 2)
Quarter: 2025Q4

REPORT INFORMATION
  Report Type: Report from Study
  Country: CA (occurrence: CA)
  Receive Date: 20251226
  Receipt Date: 20251231
  Transmission Date: 20260117
  Serious: Yes (Hospitalization, Other)
  Sender: ROCHE
  Company Number: CA-ROCHE-10000318142

PATIENT
  Age: 76 Year
  Sex: Female

DRUGS (21)
  1. ACTEMRA ACTPEN [Suspect]
     Active Substance: TOCILIZUMAB
     Indication: Giant cell arteritis
     Dosage: DRUG DOSE FIRST ADMINISTERED IS 162 MG MILLIGRAM(S)?MOREDOSAGEINFO IS ON HOLD
     Route: 058
     Dates: start: 20210222, end: 2023
  2. ACTEMRA ACTPEN [Suspect]
     Active Substance: TOCILIZUMAB
     Dosage: DRUG DOSE FIRST ADMINISTERED IS 162 MG MILLIGRAM(S)
     Route: 058
  3. PREDNISONE [Suspect]
     Active Substance: PREDNISONE
     Indication: Product used for unknown indication
     Dosage: 20 MG X 3 DAYS, THEN, 15MG X 3 DAYS, THEN, 12 MG X 3?DAYS, THEN BACK TO 9 MG FOR 2 WEEKS THEN TAPER TO 8 MG?FOR 2 WEEKS UNTIL PATIENT REACHES 5 MG
  4. PREDNISONE [Suspect]
     Active Substance: PREDNISONE
     Dosage: MOREDOSAGEINFO IS TO INCREASE TO 8MG
  5. AMLODIPINE [Concomitant]
     Active Substance: AMLODIPINE BESYLATE
  6. BRICANYL [Concomitant]
     Active Substance: TERBUTALINE SULFATE
  7. CALCIUM [Concomitant]
     Active Substance: CALCIUM
  8. Cephalon [Concomitant]
     Dosage: DRUG DOSE FIRST ADMINISTERED IS 250 MG MILLIGRAM(S)?MOREDOSAGEINFO IS FOR SIX DAYS
     Route: 048
     Dates: start: 20210511
  9. CORTEF [Concomitant]
     Active Substance: HYDROCORTISONE
     Indication: Adrenal insufficiency
  10. FOSAMAX [Concomitant]
     Active Substance: ALENDRONATE SODIUM
  11. MACROBID [Concomitant]
     Active Substance: NITROFURANTOIN\NITROFURANTOIN MONOHYDRATE
     Indication: Urinary tract infection
  12. MAGNESIUM [Concomitant]
     Active Substance: MAGNESIUM
  13. POTASSIUM [Concomitant]
     Active Substance: POTASSIUM
  14. RABEPRAZOLE [Concomitant]
     Active Substance: RABEPRAZOLE
  15. Reactine [Concomitant]
  16. SPIRONOLACTONE [Concomitant]
     Active Substance: SPIRONOLACTONE
  17. VITAMIN D [Concomitant]
     Active Substance: VITAMIN D NOS
  18. VITAMIN E [Concomitant]
     Active Substance: .ALPHA.-TOCOPHEROL
  19. ZANTAC [Concomitant]
     Active Substance: RANITIDINE HYDROCHLORIDE
  20. ZENHALE [Concomitant]
     Active Substance: FORMOTEROL FUMARATE\MOMETASONE FUROATE
  21. ZOLEDRONIC [Concomitant]
     Active Substance: ZOLEDRONIC ACID
     Indication: Osteoporosis

REACTIONS (25)
  - Erythema [Unknown]
  - Toothache [Unknown]
  - Tooth infection [Not Recovered/Not Resolved]
  - Swelling face [Unknown]
  - Malaise [Unknown]
  - Oral candidiasis [Recovered/Resolved]
  - Cellulitis [Recovered/Resolved]
  - Diarrhoea [Unknown]
  - Fatigue [Unknown]
  - Limb injury [Recovering/Resolving]
  - Blood potassium decreased [Unknown]
  - Tooth disorder [Unknown]
  - Gout [Unknown]
  - Influenza like illness [Unknown]
  - Hypertension [Unknown]
  - Gait disturbance [Unknown]
  - Cholelithiasis [Unknown]
  - Pneumonia [Unknown]
  - Asthma [Unknown]
  - Infection [Unknown]
  - Adrenal disorder [Unknown]
  - Osteoporosis [Unknown]
  - Cataract [Unknown]
  - Gastrooesophageal reflux disease [Unknown]
  - Peripheral swelling [Unknown]

NARRATIVE: CASE EVENT DATE: 20250628
